FAERS Safety Report 7519619-4 (Version None)
Quarter: 2011Q2

REPORT INFORMATION
  Report Type: 
  Country: None (occurrence: None)
  Receive Date: 20110602
  Receipt Date: 20110601
  Transmission Date: 20111010
  Serious: Yes (Other)
  Sender: FDA-Public Use
  Company Number: A0926482A

PATIENT
  Sex: Female
  Weight: 84.1 kg

DRUGS (8)
  1. TYLENOL W/ CODEINE NO. 2 [Concomitant]
     Indication: MIGRAINE
     Route: 065
  2. MEDRONE [Concomitant]
     Indication: PRECANCEROUS CELLS PRESENT
     Dosage: 10MG PER DAY
     Route: 065
  3. PALAFER [Concomitant]
     Indication: PROPHYLAXIS
     Dosage: 300MG PER DAY
     Route: 048
  4. DIAZEPAM [Concomitant]
     Dosage: 10MG TWICE PER DAY
     Route: 048
  5. PANTOPRAZOLE SODIUM [Concomitant]
     Dosage: 40MG TWICE PER DAY
     Route: 048
  6. EZETIMIBE [Concomitant]
     Dosage: 10MG PER DAY
     Route: 048
  7. VENTOLIN HFA [Concomitant]
  8. ADVAIR DISKUS 100/50 [Suspect]
     Indication: EMPHYSEMA
     Dosage: 1PUFF TWICE PER DAY
     Route: 055
     Dates: end: 20110508

REACTIONS (19)
  - PRODUCT QUALITY ISSUE [None]
  - CHOKING [None]
  - OROPHARYNGEAL PAIN [None]
  - COUGH [None]
  - FOREIGN BODY [None]
  - DECREASED APPETITE [None]
  - DYSPHAGIA [None]
  - ANXIETY [None]
  - THROAT IRRITATION [None]
  - PHARYNGITIS [None]
  - THROAT TIGHTNESS [None]
  - INSOMNIA [None]
  - DYSPNOEA [None]
  - DYSPHONIA [None]
  - PHARYNGEAL OEDEMA [None]
  - APHONIA [None]
  - NERVOUSNESS [None]
  - CHOKING SENSATION [None]
  - LOCAL SWELLING [None]
